FAERS Safety Report 11131307 (Version 1)
Quarter: 2015Q2

REPORT INFORMATION
  Report Type: Spontaneous
  Country: US (occurrence: None)
  Receive Date: 20150520
  Receipt Date: 20150520
  Transmission Date: 20150821
  Serious: No
  Sender: FDA-Public Use
  Company Number: US-002959

PATIENT

DRUGS (2)
  1. MILTEFOSINE [Suspect]
     Active Substance: MILTEFOSINE
     Indication: BALAMUTHIA INFECTION
  2. MILTEFOSINE [Suspect]
     Active Substance: MILTEFOSINE
     Indication: ENCEPHALITIS

REACTIONS (2)
  - Drug ineffective for unapproved indication [None]
  - Off label use [None]
